FAERS Safety Report 6552001 (Version 2)
Quarter: 2020Q3

REPORT INFORMATION
  Report Type: Report from Study
  Country: DE (occurrence: DE)
  Receive Date: 20080213
  Receipt Date: 20081208
  Transmission Date: 20201105
  Serious: Yes (Hospitalization)
  Sender: FDA-Public Use
  Company Number: DE-ROCHE-545287

PATIENT
  Age: 81 Year
  Sex: Female

DRUGS (5)
  1. IBANDRONIC ACID. [Suspect]
     Active Substance: IBANDRONIC ACID
     Indication: BREAST CANCER METASTATIC
     Route: 048
     Dates: start: 20051128, end: 200710
  2. ZOLEDRONATE [Suspect]
     Active Substance: ZOLEDRONIC ACID
     Route: 065
     Dates: start: 20030707, end: 20051114
  3. PALLADONE [Concomitant]
     Active Substance: HYDROMORPHONE HYDROCHLORIDE
     Dates: start: 200601
  4. FEMARA [Suspect]
     Active Substance: LETROZOLE
     Indication: PRODUCT USED FOR UNKNOWN INDICATION
     Route: 065
     Dates: start: 200307
  5. FENTANYL. [Concomitant]
     Active Substance: FENTANYL
     Dates: start: 200601

REACTIONS (9)
  - Swelling [Recovered/Resolved]
  - Facial paralysis [Recovered/Resolved]
  - Tooth extraction [Unknown]
  - Dental implantation [Unknown]
  - Necrosis [Recovered/Resolved]
  - Osteomyelitis [Recovered/Resolved]
  - Actinomycosis [Recovered/Resolved]
  - Haematoma [Recovered/Resolved]
  - Impaired healing [Recovered/Resolved]

NARRATIVE: CASE EVENT DATE: 20060501
